FAERS Safety Report 6356087-2 (Version None)
Quarter: 2009Q3

REPORT INFORMATION
  Report Type: 
  Country: None (occurrence: None)
  Receive Date: 20090915
  Receipt Date: 20090911
  Transmission Date: 20100115
  Serious: Yes (Hospitalization, Other)
  Sender: FDA-Public Use
  Company Number: GB-BRISTOL-MYERS SQUIBB COMPANY-14485833

PATIENT
  Age: 37 Year
  Sex: Female

DRUGS (2)
  1. CISPLATIN [Suspect]
     Indication: BREAST CANCER METASTATIC
     Route: 042
     Dates: start: 20081107
  2. CETUXIMAB [Suspect]
     Indication: BREAST CANCER METASTATIC
     Dosage: CETUXIMAB 5MG/ML
     Route: 042
     Dates: start: 20081107

REACTIONS (1)
  - BACK PAIN [None]
